FAERS Safety Report 12984722 (Version 2)
Quarter: 2016Q4

REPORT INFORMATION
  Report Type: Spontaneous
  Country: IE (occurrence: IE)
  Receive Date: 20161129
  Receipt Date: 20161201
  Transmission Date: 20170207
  Serious: Yes (Other)
  Sender: FDA-Public Use
  Company Number: IE-MYLANLABS-2016M1051818

PATIENT

DRUGS (1)
  1. CLOZARIL [Suspect]
     Active Substance: CLOZAPINE
     Indication: SCHIZOPHRENIA
     Dosage: UNK
     Route: 048
     Dates: start: 20161101

REACTIONS (5)
  - Neutrophil count decreased [Recovered/Resolved]
  - Influenza like illness [Unknown]
  - Haemoglobin decreased [Recovered/Resolved]
  - Asthenia [Unknown]
  - Viral infection [Unknown]

NARRATIVE: CASE EVENT DATE: 201611
